FAERS Safety Report 6027082-8 (Version None)
Quarter: 2009Q1

REPORT INFORMATION
  Report Type: 
  Country: None (occurrence: None)
  Receive Date: 20090105
  Receipt Date: 20081222
  Transmission Date: 20090719
  Serious: Yes (Other)
  Sender: FDA-Public Use
  Company Number: BR-ROCHE-604319

PATIENT
  Sex: Male
  Weight: 69 kg

DRUGS (2)
  1. ROACUTAN [Suspect]
     Indication: ACNE
     Route: 048
     Dates: start: 20080201, end: 20080801
  2. ROACUTAN [Suspect]
     Route: 048
     Dates: start: 20081101

REACTIONS (1)
  - GASTROINTESTINAL PAIN [None]
